FAERS Safety Report 7805929 (Version 3)
Quarter: 2013Q2

REPORT INFORMATION
  Report Type: Spontaneous
  Country: US (occurrence: None)
  Receive Date: 20101130
  Receipt Date: 20121203
  Transmission Date: 20140414
  Serious: Yes (Hospitalization)
  Sender: FDA-Public Use
  Company Number: 2010SP025088

PATIENT
  Age: 25 Year
  Sex: Female
  Weight: 95.26 kg

DRUGS (3)
  1. NUVARING [Suspect]
     Indication: CONTRACEPTION
     Dates: start: 20060522, end: 200804
  2. IBUPROFEN /00109201/ [Concomitant]
  3. NAPROXEN [Concomitant]

REACTIONS (4)
  - DEEP VEIN THROMBOSIS [None]
  - ANXIETY [None]
  - PULMONARY EMBOLISM [None]
  - Ligament sprain [None]
